FAERS Safety Report 16011657 (Version 1)
Quarter: 2019Q1

REPORT INFORMATION
  Report Type: Spontaneous
  Country: US (occurrence: US)
  Receive Date: 20190130
  Receipt Date: 20190130
  Transmission Date: 20190418
  Serious: No
  Sender: FDA-Public Use
  Company Number: None

PATIENT
  Age: 64 Year
  Sex: Female

DRUGS (1)
  1. XOLAIR [Suspect]
     Active Substance: OMALIZUMAB
     Indication: RHEUMATOID ARTHRITIS
     Route: 048
     Dates: start: 201711

REACTIONS (4)
  - Drug interaction [None]
  - Urinary tract infection [None]
  - Drug ineffective [None]
  - Renal failure [None]
